FAERS Safety Report 6093895-X (Version None)
Quarter: 2009Q1

REPORT INFORMATION
  Report Type: 
  Country: None (occurrence: None)
  Receive Date: 20090224
  Receipt Date: 20090224
  Transmission Date: 20090719
  Serious: Yes (Death)
  Sender: FDA-Public Use
  Company Number: None

PATIENT
  Age: 79 Year
  Sex: Male
  Weight: 70.5 kg

DRUGS (2)
  1. HEPARIN [Suspect]
     Indication: MYOCARDIAL INFARCTION
     Dosage: 1000 UNITS/HR DRIP IV DRIP, PART OF 2 DAYS
     Route: 041
     Dates: start: 20081009, end: 20081010
  2. INTEGRILIN [Suspect]
     Indication: MYOCARDIAL INFARCTION
     Dosage: 180 MCG/KG,2MCG/KG/MI BOLUS CONT. INFUSION IV DRIP
     Route: 041
     Dates: start: 20081010, end: 20081010

REACTIONS (1)
  - PULMONARY ALVEOLAR HAEMORRHAGE [None]
